FAERS Safety Report 13450978 (Version 1)
Quarter: 2017Q2

REPORT INFORMATION
  Report Type: Spontaneous
  Country: US (occurrence: US)
  Receive Date: 20170417
  Receipt Date: 20170417
  Transmission Date: 20170830
  Serious: No
  Sender: FDA-Public Use
  Company Number: None

PATIENT
  Age: 28 Year
  Sex: Female
  Weight: 54 kg

DRUGS (4)
  1. IBPROFEN [Concomitant]
  2. ELBERBERRY EXTRACT [Concomitant]
  3. NORTREL [Suspect]
     Active Substance: ETHINYL ESTRADIOL\NORETHINDRONE
     Indication: POLYCYSTIC OVARIES
     Dosage: ?          QUANTITY:1 TABLET(S);?
     Route: 048
  4. NORTREL [Suspect]
     Active Substance: ETHINYL ESTRADIOL\NORETHINDRONE
     Indication: CONTRACEPTION
     Dosage: ?          QUANTITY:1 TABLET(S);?
     Route: 048

REACTIONS (4)
  - Mood swings [None]
  - Metrorrhagia [None]
  - Gastric disorder [None]
  - Product substitution issue [None]

NARRATIVE: CASE EVENT DATE: 20170320
